FAERS Safety Report 5704900-1 (Version None)
Quarter: 2008Q2

REPORT INFORMATION
  Report Type: 
  Country: None (occurrence: None)
  Receive Date: 20080414
  Receipt Date: 20080318
  Transmission Date: 20081010
  Serious: No
  Sender: FDA-Public Use
  Company Number: US-BOEHRINGER INGELHEIM GMBH, GERMANY-2008-BP-04149BP

PATIENT
  Age: 85 Year
  Sex: Male

DRUGS (11)
  1. MIRAPEX [Suspect]
     Indication: RESTLESS LEGS SYNDROME
     Route: 048
     Dates: start: 20080128
  2. OMPREZALOL [Concomitant]
  3. NEURONTIN [Concomitant]
  4. ULTRAM [Concomitant]
     Indication: ARTHRITIS
  5. GLUCOSAMINE [Concomitant]
  6. INDAPAMIDE [Concomitant]
  7. CYMBALTA [Concomitant]
  8. TRAZEDOM [Concomitant]
  9. SIMVASTATIN [Concomitant]
  10. ARICEPT [Concomitant]
  11. TERAZOSIN HCL [Concomitant]

REACTIONS (1)
  - DRUG INEFFECTIVE [None]
